FAERS Safety Report 5624949-7 (Version None)
Quarter: 2008Q1

REPORT INFORMATION
  Report Type: 
  Country: None (occurrence: None)
  Receive Date: 20080213
  Receipt Date: 20080130
  Transmission Date: 20080703
  Serious: Yes (Other)
  Sender: FDA-Public Use
  Company Number: GB-RANBAXY-2008RR-12811

PATIENT

DRUGS (4)
  1. SIMVASTATIN [Suspect]
     Dosage: 10 MG, QD
     Route: 048
     Dates: start: 20041007, end: 20071219
  2. ASPIRIN TABLETS BP 300MG [Concomitant]
     Dosage: 75 MG, QD
     Route: 048
  3. METFORMIN 500MG TABLETS [Concomitant]
     Dosage: 500 MG, BID
     Route: 048
     Dates: start: 20051103
  4. PERINDOPRIL [Concomitant]
     Dosage: 4 MG, QD
     Route: 048
     Dates: start: 20050119

REACTIONS (1)
  - ERECTILE DYSFUNCTION [None]
